FAERS Safety Report 7506377-2 (Version None)
Quarter: 2011Q2

REPORT INFORMATION
  Report Type: 
  Country: None (occurrence: None)
  Receive Date: 20110526
  Receipt Date: 20100907
  Transmission Date: 20111010
  Serious: No
  Sender: FDA-Public Use
  Company Number: US-ABBOTT-10P-163-0670060-00

PATIENT
  Sex: Male
  Weight: 72.64 kg

DRUGS (11)
  1. SYNTHROID [Concomitant]
     Indication: HYPOTHYROIDISM
  2. PANTOPRAZOLE [Concomitant]
     Indication: PRODUCT USED FOR UNKNOWN INDICATION
  3. ALPRAZOLAM [Concomitant]
     Indication: ANXIETY
  4. LAMICTAL [Concomitant]
     Indication: BIPOLAR DISORDER
  5. NOVOLIN 70/30 [Concomitant]
     Indication: DIABETES MELLITUS
     Route: 050
  6. SPIRIVA [Concomitant]
     Indication: CHRONIC OBSTRUCTIVE PULMONARY DISEASE
  7. ZEMPLAR [Suspect]
     Indication: NEPHROPATHY
     Dates: start: 20080101
  8. SODIUM BICARBONATE [Concomitant]
     Indication: PROPHYLAXIS
  9. FLORINEF [Concomitant]
     Indication: NEPHROPATHY
  10. SODIUM BICARBONATE [Concomitant]
     Indication: ACIDOSIS
  11. ADVAIR DISKUS 100/50 [Concomitant]
     Indication: CHRONIC OBSTRUCTIVE PULMONARY DISEASE

REACTIONS (7)
  - DECREASED APPETITE [None]
  - VOMITING [None]
  - BALANCE DISORDER [None]
  - WALKING DISABILITY [None]
  - FATIGUE [None]
  - BLOOD CALCIUM INCREASED [None]
  - LYMPHOCYTE COUNT INCREASED [None]
